FAERS Safety Report 14836959 (Version 2)
Quarter: 2019Q4

REPORT INFORMATION
  Report Type: Spontaneous
  Country: US (occurrence: US)
  Receive Date: 20180502
  Receipt Date: 20191011
  Transmission Date: 20200122
  Serious: No
  Sender: FDA-Public Use
  Company Number: US-009507513-1804USA006073

PATIENT
  Age: 54 Year
  Sex: Female

DRUGS (2)
  1. ANTIVENIN [Suspect]
     Active Substance: BLACK WIDOW SPIDER (LATRODECTUS MACTANS) IMMUNE GLOBULIN ANTIVENIN (EQUINE)
     Indication: ARTHROPOD BITE
     Dosage: 1 VIAL; OVER 30 MIN
     Route: 042
  2. MORPHINE [Concomitant]
     Active Substance: MORPHINE
     Indication: ARTHROPOD BITE
     Dosage: 6 MILLIGRAM
     Route: 042

REACTIONS (1)
  - Off label use [Unknown]
